FAERS Safety Report 22630069 (Version 1)
Quarter: 2023Q2

REPORT INFORMATION
  Report Type: Spontaneous
  Country: CN (occurrence: CN)
  Receive Date: 20230622
  Receipt Date: 20230622
  Transmission Date: 20230721
  Serious: Yes (Life-Threatening)
  Sender: FDA-Public Use
  Company Number: CN-Merck Healthcare KGaA-2023455376

PATIENT
  Age: 61 Year
  Sex: Female

DRUGS (5)
  1. ERBITUX [Suspect]
     Active Substance: CETUXIMAB
     Indication: Colon neoplasm
     Dosage: 780 MG, SINGLE
     Route: 041
     Dates: start: 20230514, end: 20230514
  2. IRINOTECAN HYDROCHLORIDE [Suspect]
     Active Substance: IRINOTECAN HYDROCHLORIDE
     Indication: Colon neoplasm
     Dosage: 0.28 G, SINGLE
     Route: 041
     Dates: start: 20230514, end: 20230514
  3. FLUOROURACIL [Suspect]
     Active Substance: FLUOROURACIL
     Indication: Colon neoplasm
     Dosage: 3.7 G, SINGLE
     Route: 041
     Dates: start: 20230514, end: 20230514
  4. FLUOROURACIL [Suspect]
     Active Substance: FLUOROURACIL
     Dosage: 0.6 G, SINGLE
     Route: 041
     Dates: start: 20230514, end: 20230514
  5. LEVOLEUCOVORIN CALCIUM [Concomitant]
     Active Substance: LEVOLEUCOVORIN CALCIUM
     Indication: Colon neoplasm
     Dosage: 300 MG, SINGLE
     Route: 041
     Dates: start: 20230514, end: 20230514

REACTIONS (1)
  - Myelosuppression [Recovering/Resolving]

NARRATIVE: CASE EVENT DATE: 20230601
